FAERS Safety Report 16953476 (Version 1)
Quarter: 2019Q4

REPORT INFORMATION
  Report Type: Spontaneous
  Country: US (occurrence: US)
  Receive Date: 20191023
  Receipt Date: 20191023
  Transmission Date: 20200122
  Serious: No
  Sender: FDA-Public Use
  Company Number: US-SA-2019SA293555

PATIENT
  Sex: Male

DRUGS (18)
  1. LIDOCAINE. [Concomitant]
     Active Substance: LIDOCAINE
  2. MECLIZINE [Concomitant]
     Active Substance: MECLIZINE HYDROCHLORIDE
  3. METOPROLOL SUCCINATE. [Concomitant]
     Active Substance: METOPROLOL SUCCINATE
  4. ESOMEPRAZOLE. [Concomitant]
     Active Substance: ESOMEPRAZOLE MAGNESIUM
  5. FASENRA [Concomitant]
     Active Substance: BENRALIZUMAB
  6. POTASSIUM [Concomitant]
     Active Substance: POTASSIUM
  7. MUPIROCIN. [Concomitant]
     Active Substance: MUPIROCIN
  8. PRALUENT [Suspect]
     Active Substance: ALIROCUMAB
     Indication: ASTHMA
     Dosage: 150 MG, QOW
     Route: 058
  9. DESIPRAMINE [Concomitant]
     Active Substance: DESIPRAMINE
  10. COLCHICINE. [Concomitant]
     Active Substance: COLCHICINE
  11. PREDNISONE. [Concomitant]
     Active Substance: PREDNISONE
  12. RANITIDINE. [Concomitant]
     Active Substance: RANITIDINE
  13. FLURANDRENOLIDE. [Concomitant]
     Active Substance: FLURANDRENOLIDE
  14. AZOPT [Concomitant]
     Active Substance: BRINZOLAMIDE
  15. MYRBETRIQ [Concomitant]
     Active Substance: MIRABEGRON
  16. ASPIRIN [ACETYLSALICYLIC ACID] [Concomitant]
     Active Substance: ASPIRIN
  17. FUROSEMIDE. [Concomitant]
     Active Substance: FUROSEMIDE
  18. BRIMONIDINE [Concomitant]
     Active Substance: BRIMONIDINE TARTRATE

REACTIONS (2)
  - Product use in unapproved indication [Unknown]
  - Surgery [Unknown]
